FAERS Safety Report 14588063 (Version 1)
Quarter: 2018Q1

REPORT INFORMATION
  Report Type: Spontaneous
  Country: DK (occurrence: DK)
  Receive Date: 20180301
  Receipt Date: 20180301
  Transmission Date: 20180509
  Serious: Yes (Other)
  Sender: FDA-Public Use
  Company Number: PHHY2018DK028352

PATIENT
  Age: 34 Year
  Sex: Female

DRUGS (1)
  1. SANDOSTATIN LAR DEPOT [Suspect]
     Active Substance: OCTREOTIDE ACETATE
     Indication: HYPERINSULINAEMIC HYPOGLYCAEMIA
     Dosage: EVERY FOURTH WEEK, INITIAL DOSAGE
     Route: 030
     Dates: start: 2005

REACTIONS (4)
  - Product use in unapproved indication [Unknown]
  - Maternal exposure during pregnancy [Unknown]
  - Abortion missed [Unknown]
  - Abortion spontaneous [Unknown]
